FAERS Safety Report 4936862-9 (Version None)
Quarter: 2006Q1

REPORT INFORMATION
  Report Type: 
  Country: None (occurrence: None)
  Receive Date: 20060307
  Receipt Date: 20050927
  Transmission Date: 20060701
  Serious: Yes (Hospitalization)
  Sender: FDA-Public Use
  Company Number: US-MERCK-0509USA04025

PATIENT
  Age: 67 Year
  Sex: Male

DRUGS (3)
  1. VIOXX [Suspect]
     Indication: ARTHRITIS
     Route: 048
     Dates: start: 20030806, end: 20040501
  2. AMITRIPTYLINE HYDROCHLORIDE [Concomitant]
     Route: 065
  3. THIAMINE [Concomitant]
     Route: 065

REACTIONS (1)
  - INFARCTION [None]
